FAERS Safety Report 22609731 (Version 1)
Quarter: 2023Q2

REPORT INFORMATION
  Report Type: Spontaneous
  Country: FR (occurrence: FR)
  Receive Date: 20230616
  Receipt Date: 20230616
  Transmission Date: 20230721
  Serious: Yes (Hospitalization)
  Sender: FDA-Public Use
  Company Number: None

PATIENT
  Age: 74 Year
  Sex: Male
  Weight: 75 kg

DRUGS (1)
  1. SUNITINIB [Suspect]
     Active Substance: SUNITINIB
     Indication: Renal cancer
     Dosage: 50 MG/D 2 WK/3, 1FP
     Route: 065
     Dates: start: 2022

REACTIONS (1)
  - Central nervous system vasculitis [Recovering/Resolving]

NARRATIVE: CASE EVENT DATE: 20230401
